FAERS Safety Report 18375750 (Version 1)
Quarter: 2020Q4

REPORT INFORMATION
  Report Type: Spontaneous
  Country: US (occurrence: US)
  Receive Date: 20201009
  Receipt Date: 20201009
  Transmission Date: 20210114
  Serious: No
  Sender: FDA-Public Use
  Company Number: None

PATIENT
  Age: 69 Year
  Sex: Female
  Weight: 63.99 kg

DRUGS (11)
  1. PROAIR RESPICLICK [Concomitant]
     Active Substance: ALBUTEROL SULFATE
  2. PANTOPRAZOLE 40MG [Concomitant]
     Active Substance: PANTOPRAZOLE SODIUM
  3. METFORMIN 500MG [Concomitant]
     Active Substance: METFORMIN HYDROCHLORIDE
  4. CAPECITABINE. [Suspect]
     Active Substance: CAPECITABINE
     Indication: GASTRIC CANCER
     Route: 048
     Dates: start: 20200305
  5. TRELEGY ELLIPTA 100-62.5-25MCG [Concomitant]
  6. AMLODIPINE [Concomitant]
     Active Substance: AMLODIPINE BESYLATE
  7. ASPIRIN 81MG [Concomitant]
     Active Substance: ASPIRIN
  8. ATORVASTATIN 20MG [Concomitant]
     Active Substance: ATORVASTATIN
  9. MULTIVITAMIN [Concomitant]
     Active Substance: VITAMINS
  10. FUROSEMIDE 20MG [Concomitant]
     Active Substance: FUROSEMIDE
  11. LOSARTAN-HCTZ 100-25MG [Concomitant]

REACTIONS (1)
  - Peripheral coldness [None]

NARRATIVE: CASE EVENT DATE: 20201009
